FAERS Safety Report 9938892 (Version 1)
Quarter: 2014Q1

REPORT INFORMATION
  Report Type: Spontaneous
  Country: US (occurrence: US)
  Receive Date: 20140303
  Receipt Date: 20140303
  Transmission Date: 20141002
  Serious: Yes (Other)
  Sender: FDA-Public Use
  Company Number: US-ABBVIE-13P-163-1033724-00

PATIENT
  Age: 38 Year
  Sex: Female
  Weight: 38.59 kg

DRUGS (3)
  1. HUMIRA [Suspect]
     Indication: PSORIASIS
     Dates: start: 200808
  2. HUMIRA [Suspect]
     Indication: PSORIATIC ARTHROPATHY
  3. MULTIVITAMIN [Concomitant]
     Indication: PRODUCT USED FOR UNKNOWN INDICATION

REACTIONS (2)
  - Osteonecrosis [Recovered/Resolved]
  - Arthralgia [Recovered/Resolved]
